FAERS Safety Report 24939171 (Version 1)
Quarter: 2025Q1

REPORT INFORMATION
  Report Type: Spontaneous
  Country: US (occurrence: US)
  Receive Date: 20250206
  Receipt Date: 20250206
  Transmission Date: 20250408
  Serious: Yes (Other)
  Sender: RADIUS PHARM
  Company Number: US-RADIUS HEALTH INC.-2025US000870

PATIENT
  Age: 83 Year
  Sex: Male

DRUGS (2)
  1. TYMLOS [Suspect]
     Active Substance: ABALOPARATIDE
     Indication: Osteoporosis
     Route: 058
     Dates: start: 2024
  2. VITAMINS NOS [Concomitant]
     Active Substance: VITAMINS
     Indication: Product used for unknown indication

REACTIONS (11)
  - Atrial fibrillation [Unknown]
  - Body temperature decreased [Unknown]
  - Feeling hot [Unknown]
  - Sleep disorder [Unknown]
  - Hyperhidrosis [Unknown]
  - Dyspnoea [Unknown]
  - Asthenia [Unknown]
  - Lethargy [Unknown]
  - Vertigo [Unknown]
  - Pain [Unknown]
  - Pain in extremity [Unknown]

NARRATIVE: CASE EVENT DATE: 20250130
